FAERS Safety Report 5595638-2 (Version None)
Quarter: 2008Q1

REPORT INFORMATION
  Report Type: 
  Country: None (occurrence: None)
  Receive Date: 20080118
  Receipt Date: 20080109
  Transmission Date: 20080703
  Serious: Yes (Hospitalization)
  Sender: FDA-Public Use
  Company Number: US-ABBOTT-08P-163-0431766-00

PATIENT
  Sex: Female
  Weight: 54.48 kg

DRUGS (2)
  1. HUMIRA [Suspect]
     Indication: CROHN'S DISEASE
     Route: 058
     Dates: start: 20070816, end: 20071201
  2. HUMIRA [Suspect]
     Route: 058

REACTIONS (3)
  - INFECTION [None]
  - MENTAL STATUS CHANGES [None]
  - NEPHROLITHIASIS [None]
